FAERS Safety Report 8818446 (Version 1)
Quarter: 2012Q4

REPORT INFORMATION
  Report Type: 
  Country: US (occurrence: US)
  Receive Date: 20121001
  Receipt Date: 20121001
  Transmission Date: 20130627
  Serious: Yes (Hospitalization)
  Sender: FDA-Public Use
  Company Number: US-ELI_LILLY_AND_COMPANY-US201206008264

PATIENT
  Age: 75 None
  Sex: Female

DRUGS (5)
  1. FORTEO [Suspect]
     Indication: OSTEOPOROSIS
     Dosage: 20 ug, qd
     Dates: start: 20110602
  2. FORTEO [Suspect]
     Dosage: 20 ug, qd
  3. CALCIUM [Concomitant]
     Dosage: 400 mg, bid
  4. CALCIUM [Concomitant]
     Dosage: 400 mg, qd
  5. PERCOCET [Concomitant]
     Indication: PAIN

REACTIONS (10)
  - Lung neoplasm malignant [Recovered/Resolved]
  - Bone pain [Unknown]
  - Muscular weakness [Not Recovered/Not Resolved]
  - Constipation [Unknown]
  - Arthralgia [Unknown]
  - Asthenia [Not Recovered/Not Resolved]
  - Blood calcium increased [Unknown]
  - Muscle spasms [Unknown]
  - Crying [Unknown]
  - Anger [Unknown]
